FAERS Safety Report 22617923 (Version 2)
Quarter: 2024Q3

REPORT INFORMATION
  Report Type: Spontaneous
  Country: US (occurrence: US)
  Receive Date: 20230620
  Receipt Date: 20240711
  Transmission Date: 20241017
  Serious: No
  Sender: PIERRE FABRE MEDICAMENT
  Company Number: US-PFM-2022-06720

PATIENT
  Age: 0 Year
  Sex: Male
  Weight: 4.5 kg

DRUGS (1)
  1. HEMANGEOL [Suspect]
     Active Substance: PROPRANOLOL HYDROCHLORIDE
     Indication: Haemangioma
     Dosage: 0.7 ML, BID (2/DAY)
     Route: 048
     Dates: start: 20220901

REACTIONS (3)
  - Rash [Unknown]
  - Sleep disorder [Unknown]
  - Hand-foot-and-mouth disease [Unknown]

NARRATIVE: CASE EVENT DATE: 20220901
